FAERS Safety Report 9031058 (Version 1)
Quarter: 2013Q1

REPORT INFORMATION
  Report Type: Spontaneous
  Country: US (occurrence: US)
  Receive Date: 20130123
  Receipt Date: 20130123
  Transmission Date: 20140127
  Serious: No
  Sender: FDA-Public Use
  Company Number: US-PFIZER INC-2013028122

PATIENT
  Age: 59 Year
  Sex: Female
  Weight: 72.56 kg

DRUGS (1)
  1. ESTROGENS CONJUGATED [Suspect]
     Indication: HORMONE REPLACEMENT THERAPY
     Dosage: 1.25 MG, 5X/WEEK
     Route: 048

REACTIONS (1)
  - Drug ineffective [Recovered/Resolved]
